FAERS Safety Report 4270972-7 (Version None)
Quarter: 2004Q1

REPORT INFORMATION
  Report Type: 
  Country: None (occurrence: None)
  Receive Date: 20040114
  Receipt Date: 20040109
  Transmission Date: 20041129
  Serious: Yes (Hospitalization)
  Sender: FDA-Public Use
  Company Number: WAES 0401FRA00020

PATIENT
  Age: 46 Year
  Sex: Male

DRUGS (4)
  1. ABACAVIR SULFATE [Concomitant]
     Indication: HIV INFECTION
     Route: 048
     Dates: start: 20021201
  2. LAMIVUDINE [Concomitant]
     Indication: HIV INFECTION
     Route: 048
     Dates: start: 20021201
  3. COZAAR [Suspect]
     Route: 048
     Dates: start: 20030601, end: 20031101
  4. TENOFOVIR DISOPROXIL FUMARATE [Concomitant]
     Indication: HIV INFECTION
     Route: 048
     Dates: start: 20021201

REACTIONS (1)
  - LEUKOCYTOCLASTIC VASCULITIS [None]
